FAERS Safety Report 8943962 (Version 1)
Quarter: 2012Q4

REPORT INFORMATION
  Report Type: Spontaneous
  Country: US (occurrence: None)
  Receive Date: 20121205
  Receipt Date: 20121205
  Transmission Date: 20130627
  Serious: Yes (Other)
  Sender: FDA-Public Use
  Company Number: None

PATIENT
  Sex: Male
  Weight: 83.92 kg

DRUGS (3)
  1. METHYLPREDNISOLONE ACETATE [Suspect]
     Indication: LUMBAR SPINAL STENOSIS
     Dosage: 80mg prn Epidural
     Route: 008
     Dates: start: 20120717, end: 20120926
  2. METHYLPREDNISOLONE ACETATE [Suspect]
     Indication: SPONDYLOSIS
     Dosage: 80mg prn Epidural
     Route: 008
     Dates: start: 20120717, end: 20120926
  3. METHYLPREDNISOLONE ACETATE [Suspect]
     Indication: ARTHROSIS
     Dosage: 80mg prn Epidural
     Route: 008
     Dates: start: 20120717, end: 20120926

REACTIONS (1)
  - No adverse event [None]
